FAERS Safety Report 4489207-5 (Version None)
Quarter: 2004Q4

REPORT INFORMATION
  Report Type: 
  Country: None (occurrence: None)
  Receive Date: 20041029
  Receipt Date: 20041025
  Transmission Date: 20050328
  Serious: Yes (Death)
  Sender: FDA-Public Use
  Company Number: BE-JNJFOC-20041007641

PATIENT
  Age: 74 Year
  Sex: Female

DRUGS (1)
  1. PROPULSID [Suspect]
     Route: 049

REACTIONS (1)
  - DEATH [None]
